FAERS Safety Report 8915010 (Version 1)
Quarter: 2012Q4

REPORT INFORMATION
  Report Type: Report from Study
  Country: US (occurrence: US)
  Receive Date: 20121119
  Receipt Date: 20121119
  Transmission Date: 20130627
  Serious: Yes (Death)
  Sender: FDA-Public Use
  Company Number: US-ROCHE-1156296

PATIENT

DRUGS (4)
  1. TRASTUZUMAB [Suspect]
     Indication: BREAST CANCER
     Route: 065
  2. ADRIAMYCIN [Concomitant]
     Indication: BREAST CANCER
     Route: 065
  3. CARBOPLATIN [Concomitant]
     Indication: BREAST CANCER
     Route: 065
  4. TAXOTERE [Concomitant]
     Indication: BREAST CANCER
     Route: 065

REACTIONS (1)
  - Death [Fatal]
